FAERS Safety Report 25521750 (Version 1)
Quarter: 2025Q3

REPORT INFORMATION
  Report Type: Spontaneous
  Country: MX (occurrence: MX)
  Receive Date: 20250706
  Receipt Date: 20250706
  Transmission Date: 20251020
  Serious: Yes (Other)
  Sender: IPSEN BIOPHARMACEUTICALS, INC.
  Company Number: MX-IPSEN Group, Research and Development-2025-15468

PATIENT
  Age: 60 Year
  Sex: Female

DRUGS (1)
  1. LANREOTIDE ACETATE [Suspect]
     Active Substance: LANREOTIDE ACETATE
     Indication: Gastroenteropancreatic neuroendocrine tumour disease

REACTIONS (3)
  - Disease progression [Unknown]
  - Rectal haemorrhage [Unknown]
  - Metastases to spine [Unknown]
